FAERS Safety Report 20679467 (Version 3)
Quarter: 2022Q4

REPORT INFORMATION
  Report Type: Spontaneous
  Country: US (occurrence: US)
  Receive Date: 20220406
  Receipt Date: 20221115
  Transmission Date: 20230113
  Serious: Yes (Other)
  Sender: FDA-Public Use
  Company Number: US-BEH-2022143747

PATIENT
  Age: 45 Year
  Sex: Male
  Weight: 90.703 kg

DRUGS (1)
  1. HIZENTRA [Suspect]
     Active Substance: HUMAN IMMUNOGLOBULIN G
     Indication: Chronic inflammatory demyelinating polyradiculoneuropathy
     Dosage: 23 GRAM EVERY 4 DAYS
     Route: 058
     Dates: start: 20220309

REACTIONS (6)
  - Pain [Unknown]
  - Thoracic spinal stenosis [Unknown]
  - Cervical spinal stenosis [Unknown]
  - Exostosis [Unknown]
  - Spinal pain [Not Recovered/Not Resolved]
  - Drug ineffective [Unknown]
